FAERS Safety Report 4749501-7 (Version None)
Quarter: 2005Q3

REPORT INFORMATION
  Report Type: 
  Country: None (occurrence: None)
  Receive Date: 20050819
  Receipt Date: 20050804
  Transmission Date: 20060218
  Serious: Yes (Hospitalization)
  Sender: FDA-Public Use
  Company Number: 2005AL002615

PATIENT
  Age: 59 Year
  Sex: Female

DRUGS (3)
  1. SPIRONOLACTONE [Suspect]
     Indication: HYPERALDOSTERONISM
     Dosage: 100 MG; QD; PO
     Route: 048
     Dates: start: 20050101, end: 20050101
  2. SPIRONOLACTONE TABLETS USP, 50 MG (PUREPAC) [Suspect]
     Indication: HYPERALDOSTERONISM
     Dosage: 50 MG; QD; PO
     Route: 048
     Dates: start: 20050101, end: 20050101
  3. SPIRONOLACTONE TABLETS USP, 50 MG (PUREPAC) [Suspect]
     Indication: HYPERALDOSTERONISM
     Dosage: 25 MG; QD; PO
     Route: 048
     Dates: start: 20050101, end: 20050701

REACTIONS (4)
  - BREAST PAIN [None]
  - HYPERTROPHY BREAST [None]
  - MASTITIS [None]
  - VAGINAL HAEMORRHAGE [None]
